FAERS Safety Report 5796716-5 (Version None)
Quarter: 2008Q3

REPORT INFORMATION
  Report Type: 
  Country: None (occurrence: None)
  Receive Date: 20080701
  Receipt Date: 20080609
  Transmission Date: 20090109
  Serious: Yes (Death)
  Sender: FDA-Public Use
  Company Number: CZ-MERCK-0806CZE00001

PATIENT
  Age: 35 Year
  Sex: Male

DRUGS (2)
  1. CANCIDAS [Suspect]
     Indication: ASPERGILLOSIS
     Route: 065
  2. VORICONAZOLE [Concomitant]
     Indication: ASPERGILLOSIS
     Route: 065

REACTIONS (2)
  - DISEASE PROGRESSION [None]
  - TREATMENT FAILURE [None]
